FAERS Safety Report 14428305 (Version 1)
Quarter: 2018Q1

REPORT INFORMATION
  Report Type: Spontaneous
  Country: US (occurrence: US)
  Receive Date: 20180123
  Receipt Date: 20180123
  Transmission Date: 20180509
  Serious: Yes (Hospitalization)
  Sender: FDA-Public Use
  Company Number: None

PATIENT
  Age: 63 Year
  Sex: Female

DRUGS (1)
  1. TASIGNA [Suspect]
     Active Substance: NILOTINIB
     Indication: LEUKAEMIA
     Dosage: 150MG 300MG  Q12H PO
     Route: 048
     Dates: start: 201801

REACTIONS (1)
  - Atrial fibrillation [None]

NARRATIVE: CASE EVENT DATE: 20180108
